FAERS Safety Report 24688924 (Version 1)
Quarter: 2024Q4

REPORT INFORMATION
  Report Type: Report from Study
  Country: GR (occurrence: GR)
  Receive Date: 20241203
  Receipt Date: 20241203
  Transmission Date: 20250115
  Serious: Yes (Death, Hospitalization, Other)
  Sender: TAKEDA
  Company Number: GR-TAKEDA-2024TUS015202

PATIENT
  Age: 67 Year
  Sex: Female

DRUGS (7)
  1. HUMAN IMMUNOGLOBULIN G\HYALURONIDASE RECOMBINANT HUMAN [Suspect]
     Active Substance: HUMAN IMMUNOGLOBULIN G\HYALURONIDASE (HUMAN RECOMBINANT)
     Indication: Immunodeficiency
     Dosage: UNK
  2. HUMAN IMMUNOGLOBULIN G\HYALURONIDASE RECOMBINANT HUMAN [Suspect]
     Active Substance: HUMAN IMMUNOGLOBULIN G\HYALURONIDASE (HUMAN RECOMBINANT)
     Indication: Muscular weakness
     Dosage: 600 MILLILITER, 2/MONTH
     Dates: start: 20231109
  3. TERIPARATIDE [Concomitant]
     Active Substance: TERIPARATIDE
     Indication: Osteoarthritis
     Dosage: UNK UNK, QD
  4. XARELTO [Concomitant]
     Active Substance: RIVAROXABAN
  5. MESTINON [Concomitant]
     Active Substance: PYRIDOSTIGMINE BROMIDE
  6. GLUCOPHAGE [Concomitant]
     Active Substance: METFORMIN HYDROCHLORIDE
  7. CORTISONE [Concomitant]
     Active Substance: CORTISONE

REACTIONS (4)
  - Pneumothorax [Fatal]
  - Swelling [Unknown]
  - Joint swelling [Recovering/Resolving]
  - Injection site swelling [Recovering/Resolving]

NARRATIVE: CASE EVENT DATE: 20240208
